FAERS Safety Report 9163086 (Version 2)
Quarter: 2013Q2

REPORT INFORMATION
  Report Type: Spontaneous
  Country: IT (occurrence: IT)
  Receive Date: 20130314
  Receipt Date: 20130419
  Transmission Date: 20140414
  Serious: Yes (Other)
  Sender: FDA-Public Use
  Company Number: IT-JNJFOC-20130300596

PATIENT
  Age: 15 Year
  Sex: Male

DRUGS (1)
  1. RISPERDAL [Suspect]
     Indication: PSYCHOTIC DISORDER
     Route: 048
     Dates: start: 20110413, end: 20130220

REACTIONS (4)
  - Apathy [Recovering/Resolving]
  - Asocial behaviour [Recovering/Resolving]
  - Depressed mood [Recovering/Resolving]
  - Negative thoughts [Recovering/Resolving]
